FAERS Safety Report 17427733 (Version 1)
Quarter: 2020Q1

REPORT INFORMATION
  Report Type: Spontaneous
  Country: FR (occurrence: FR)
  Receive Date: 20200218
  Receipt Date: 20200218
  Transmission Date: 20200409
  Serious: Yes (Hospitalization)
  Sender: FDA-Public Use
  Company Number: FR-ACCORD-172706

PATIENT
  Age: 62 Year
  Sex: Male
  Weight: 95 kg

DRUGS (5)
  1. AVASTIN [Concomitant]
     Active Substance: BEVACIZUMAB
     Indication: ANAPLASTIC MENINGIOMA
     Dosage: STRENGTH: 25 MG / ML
     Route: 041
     Dates: start: 20191113, end: 20191113
  2. ONDANSETRON ACCORD [Concomitant]
     Active Substance: ONDANSETRON
     Indication: PREMEDICATION
     Route: 042
     Dates: start: 20191113, end: 20191113
  3. IRINOTECAN ACCORD [Suspect]
     Active Substance: IRINOTECAN
     Indication: ANAPLASTIC MENINGIOMA
     Dosage: STRENGTH: 20 MG / ML
     Route: 041
     Dates: start: 20191113, end: 20191113
  4. METHYLPREDNISOLONE MYLAN [Concomitant]
     Active Substance: METHYLPREDNISOLONE
     Indication: PREMEDICATION
     Route: 041
     Dates: start: 20191113, end: 20191113
  5. ATROPINE. [Concomitant]
     Active Substance: ATROPINE
     Indication: PREMEDICATION
     Dosage: STRENGTH:  0.25 MG / ML
     Route: 042
     Dates: start: 20191113, end: 20191113

REACTIONS (3)
  - Infusion related reaction [Recovered/Resolved]
  - Hypertension [Recovered/Resolved]
  - Vomiting [Recovered/Resolved]

NARRATIVE: CASE EVENT DATE: 20191113
